FAERS Safety Report 6310126-3 (Version None)
Quarter: 2009Q3

REPORT INFORMATION
  Report Type: 
  Country: None (occurrence: None)
  Receive Date: 20090811
  Receipt Date: 20090728
  Transmission Date: 20100115
  Serious: Yes (Hospitalization)
  Sender: FDA-Public Use
  Company Number: KV200800130

PATIENT
  Age: 78 Year
  Sex: Female
  Weight: 90.7 kg

DRUGS (3)
  1. MORPHINE SULFATE [Suspect]
     Indication: BACK PAIN
     Dosage: 100 MG, TID, ORAL
     Route: 048
     Dates: end: 20080601
  2. NEURONTIN [Concomitant]
  3. AMLODIPINE [Concomitant]

REACTIONS (8)
  - ERYTHEMA [None]
  - GASTROINTESTINAL HYPERMOTILITY [None]
  - OVERDOSE [None]
  - PRODUCT QUALITY ISSUE [None]
  - SKIN DISCOLOURATION [None]
  - SKIN TIGHTNESS [None]
  - SWELLING [None]
  - UNRESPONSIVE TO STIMULI [None]
